FAERS Safety Report 7090362-1 (Version None)
Quarter: 2010Q4

REPORT INFORMATION
  Report Type: 
  Country: None (occurrence: None)
  Receive Date: 20101104
  Receipt Date: 20101104
  Transmission Date: 20110411
  Serious: Yes (Other)
  Sender: FDA-Public Use
  Company Number: None

PATIENT
  Sex: Female
  Weight: 60.5 kg

DRUGS (4)
  1. DULERA TABLET [Suspect]
     Indication: ASTHMA
     Dosage: ONCE, SINGLE PUF INHALER
     Route: 055
     Dates: start: 20101103
  2. DULERA TABLET [Suspect]
     Indication: HYPERSENSITIVITY
     Dosage: ONCE, SINGLE PUF INHALER
     Route: 055
     Dates: start: 20101103
  3. MIDOL EXTENDED RELIEF CAPLETS [Concomitant]
  4. EXCEDRIN PMS [Concomitant]

REACTIONS (1)
  - TIC [None]
